FAERS Safety Report 24263897 (Version 1)
Quarter: 2024Q3

REPORT INFORMATION
  Report Type: Spontaneous
  Country: US (occurrence: US)
  Receive Date: 20240829
  Receipt Date: 20240829
  Transmission Date: 20241016
  Serious: Yes (Other)
  Sender: JOHNSON AND JOHNSON
  Company Number: US-JNJFOC-20240850278

PATIENT

DRUGS (2)
  1. TYLENOL [Suspect]
     Active Substance: ACETAMINOPHEN
     Indication: Pain
     Route: 065
  2. TYLENOL [Suspect]
     Active Substance: ACETAMINOPHEN
     Indication: Anticoagulant therapy

REACTIONS (5)
  - Product use in unapproved indication [Unknown]
  - Gastric haemorrhage [Unknown]
  - Renal disorder [Unknown]
  - Liver disorder [Unknown]
  - Therapeutic response unexpected [Unknown]
